FAERS Safety Report 12202214 (Version 2)
Quarter: 2016Q1

REPORT INFORMATION
  Report Type: Spontaneous
  Country: JP (occurrence: JP)
  Receive Date: 20160322
  Receipt Date: 20160328
  Transmission Date: 20160526
  Serious: Yes (Other)
  Sender: FDA-Public Use
  Company Number: JP-TEVA-644238ISR

PATIENT
  Age: 55 Year
  Sex: Male
  Weight: 41 kg

DRUGS (8)
  1. E-FEN BUCCAL [Suspect]
     Active Substance: FENTANYL CITRATE
     Indication: BREAKTHROUGH PAIN
     Dosage: 150-300 MICROGRAM
     Route: 002
     Dates: start: 20150302, end: 20150305
  2. E-FEN BUCCAL [Suspect]
     Active Substance: FENTANYL CITRATE
     Dosage: 100- MICROGRAM
     Route: 002
     Dates: start: 20150316, end: 20150321
  3. FENTANYL CITRATE. [Concomitant]
     Active Substance: FENTANYL CITRATE
     Indication: CANCER PAIN
     Dosage: 2 MILLIGRAM DAILY;
     Route: 062
     Dates: start: 20150302, end: 20150321
  4. OXIFAST [Concomitant]
     Active Substance: OXYCODONE
     Indication: BREAKTHROUGH PAIN
     Route: 058
     Dates: start: 20150322
  5. CELECOXIB. [Concomitant]
     Active Substance: CELECOXIB
     Indication: CANCER PAIN
     Dosage: 200 MILLIGRAM DAILY;
     Route: 048
     Dates: end: 20150321
  6. E-FEN BUCCAL [Suspect]
     Active Substance: FENTANYL CITRATE
     Dosage: 200-300 MICROGRAM
     Route: 002
     Dates: start: 20150306, end: 20150315
  7. LANSOPRAZOLE. [Concomitant]
     Active Substance: LANSOPRAZOLE
     Indication: PROPHYLAXIS
     Dosage: 15 MILLIGRAM DAILY;
     Route: 048
     Dates: end: 20150321
  8. LYRICA [Concomitant]
     Active Substance: PREGABALIN
     Indication: CANCER PAIN
     Dosage: 150 MILLIGRAM DAILY;
     Route: 048
     Dates: end: 20150321

REACTIONS (3)
  - Condition aggravated [Unknown]
  - Ileus [Unknown]
  - Vomiting [Unknown]

NARRATIVE: CASE EVENT DATE: 20150322
